FAERS Safety Report 20351685 (Version 1)
Quarter: 2022Q1

REPORT INFORMATION
  Report Type: Spontaneous
  Country: US (occurrence: US)
  Receive Date: 20220119
  Receipt Date: 20220119
  Transmission Date: 20220424
  Serious: No
  Sender: FDA-Public Use
  Company Number: US-Fresenius Medical Care Renal Therapies Group-FMC-2201-000035

PATIENT
  Sex: Female

DRUGS (1)
  1. DELFLEX [Suspect]
     Active Substance: CALCIUM CHLORIDE\DEXTROSE\MAGNESIUM CHLORIDE\SODIUM CHLORIDE\SODIUM LACTATE
     Indication: End stage renal disease
     Dosage: FILLS = 6, FILL VOLUME = 2,500 ML, LAST FILL VOLUME = 2,500ML, TOTAL VOLUME = 15,000 ML, TOTAL SLEEP
     Route: 033

REACTIONS (2)
  - Adnexa uteri pain [Unknown]
  - Swelling [Unknown]
